FAERS Safety Report 5467737-7 (Version None)
Quarter: 2007Q3

REPORT INFORMATION
  Report Type: 
  Country: None (occurrence: None)
  Receive Date: 20070814
  Receipt Date: 20070618
  Transmission Date: 20080115
  Serious: No
  Sender: FDA-Public Use
  Company Number: 200714430US

PATIENT
  Sex: Male

DRUGS (1)
  1. INSULIN GLULISINE (ADIDRA) SOLUTION FOR INJECTION [Suspect]
     Dates: start: 20070501

REACTIONS (2)
  - ANXIETY [None]
  - DEPRESSION [None]
